FAERS Safety Report 10059910 (Version 5)
Quarter: 2015Q1

REPORT INFORMATION
  Report Type: Spontaneous
  Country: US (occurrence: US)
  Receive Date: 20140404
  Receipt Date: 20150305
  Transmission Date: 20150720
  Serious: Yes (Other)
  Sender: FDA-Public Use
  Company Number: US-GLAXOSMITHKLINE-A1067942A

PATIENT
  Age: 73 Year
  Sex: Male

DRUGS (26)
  1. ADVAIR HFA [Suspect]
     Active Substance: FLUTICASONE PROPIONATE\SALMETEROL XINAFOATE
     Indication: COUGH
  2. SINGULAIR [Concomitant]
     Active Substance: MONTELUKAST SODIUM
  3. FISH OIL [Concomitant]
     Active Substance: FISH OIL
  4. PREDNISONE. [Concomitant]
     Active Substance: PREDNISONE
  5. VENTOLIN [Suspect]
     Active Substance: ALBUTEROL SULFATE
     Indication: DYSPNOEA
  6. ULORIC [Concomitant]
     Active Substance: FEBUXOSTAT
  7. VENTOLIN [Suspect]
     Active Substance: ALBUTEROL SULFATE
     Indication: BRONCHOSPASM
  8. ADVAIR HFA [Suspect]
     Active Substance: FLUTICASONE PROPIONATE\SALMETEROL XINAFOATE
     Indication: RESTRICTIVE PULMONARY DISEASE
  9. MEROPENEM. [Concomitant]
     Active Substance: MEROPENEM
  10. ALTACE [Concomitant]
     Active Substance: RAMIPRIL
  11. COREG [Suspect]
     Active Substance: CARVEDILOL
     Indication: CARDIOVASCULAR DISORDER
     Route: 065
     Dates: start: 20050103
  12. COREG [Suspect]
     Active Substance: CARVEDILOL
     Dosage: UNK UNK, U
  13. COREG CR [Suspect]
     Active Substance: CARVEDILOL PHOSPHATE
     Indication: CARDIOVASCULAR DISORDER
     Dosage: 80 MG
     Route: 065
  14. ADVAIR DISKUS [Suspect]
     Active Substance: FLUTICASONE PROPIONATE\SALMETEROL XINAFOATE
     Indication: ASTHMA
  15. ADVAIR DISKUS [Suspect]
     Active Substance: FLUTICASONE PROPIONATE\SALMETEROL XINAFOATE
     Indication: COUGH
  16. VITAMIN E [Concomitant]
     Active Substance: .ALPHA.-TOCOPHEROL
  17. ADVAIR DISKUS [Suspect]
     Active Substance: FLUTICASONE PROPIONATE\SALMETEROL XINAFOATE
     Indication: RESPIRATORY DISORDER
     Dosage: 1 PUFF(S), BID
     Route: 055
     Dates: start: 2007
  18. VENTOLIN [Suspect]
     Active Substance: ALBUTEROL SULFATE
     Indication: RESPIRATORY DISORDER
     Dosage: 2 PUFFS AS REQUIRED
     Route: 055
     Dates: start: 2000
  19. VENTOLIN [Suspect]
     Active Substance: ALBUTEROL SULFATE
     Indication: WHEEZING
  20. ADVAIR HFA [Suspect]
     Active Substance: FLUTICASONE PROPIONATE\SALMETEROL XINAFOATE
     Indication: ASTHMA
     Dosage: 2 PUFF(S), BID
     Route: 055
     Dates: start: 201209
  21. DEMADEX [Concomitant]
     Active Substance: TORSEMIDE
  22. PRILOSEC [Concomitant]
     Active Substance: OMEPRAZOLE MAGNESIUM
  23. VITAMIN D [Concomitant]
     Active Substance: CHOLECALCIFEROL
  24. CRESTOR [Concomitant]
     Active Substance: ROSUVASTATIN CALCIUM
  25. VITAMIN C [Concomitant]
     Active Substance: ASCORBIC ACID
  26. COREG CR [Suspect]
     Active Substance: CARVEDILOL PHOSPHATE
     Indication: CARDIAC FAILURE CONGESTIVE
     Dosage: 80 MG, U

REACTIONS (10)
  - Dyspnoea [Unknown]
  - Visual impairment [Unknown]
  - Eye operation [Unknown]
  - Pseudomonas infection [Recovering/Resolving]
  - Road traffic accident [Unknown]
  - Aphonia [Recovering/Resolving]
  - Seizure like phenomena [Unknown]
  - Cardiac disorder [Recovering/Resolving]
  - Cough [Recovering/Resolving]
  - Drug ineffective [Unknown]

NARRATIVE: CASE EVENT DATE: 2014
